FAERS Safety Report 10203070 (Version 4)
Quarter: 2015Q2

REPORT INFORMATION
  Report Type: Spontaneous
  Country: TR (occurrence: TR)
  Receive Date: 20140529
  Receipt Date: 20150510
  Transmission Date: 20150821
  Serious: Yes (Other)
  Sender: FDA-Public Use
  Company Number: TR-AMGEN INC.-TURSP2014039579

PATIENT
  Age: 39 Year
  Sex: Male

DRUGS (2)
  1. ENBREL [Suspect]
     Active Substance: ETANERCEPT
     Dosage: 25 MG, WEEKLY
     Route: 058
  2. ENBREL [Suspect]
     Active Substance: ETANERCEPT
     Indication: ANKYLOSING SPONDYLITIS
     Dosage: 50 MG, WEEKLY
     Route: 058
     Dates: start: 201308, end: 201407

REACTIONS (4)
  - Umbilical hernia [Recovered/Resolved]
  - Cholelithiasis [Recovered/Resolved]
  - Pain in extremity [Not Recovered/Not Resolved]
  - Gallbladder disorder [Unknown]

NARRATIVE: CASE EVENT DATE: 201503
